FAERS Safety Report 16177665 (Version 3)
Quarter: 2019Q2

REPORT INFORMATION
  Report Type: Spontaneous
  Country: PL (occurrence: PL)
  Receive Date: 20190410
  Receipt Date: 20190529
  Transmission Date: 20190711
  Serious: Yes (Death, Hospitalization, Other)
  Sender: FDA-Public Use
  Company Number: PL-009507513-1904POL000872

PATIENT
  Age: 70 Year
  Sex: Male
  Weight: 72 kg

DRUGS (3)
  1. RIBAVIRIN. [Suspect]
     Active Substance: RIBAVIRIN
     Indication: CHRONIC HEPATITIS C
     Dosage: 600 MILLIGRAM
     Route: 048
     Dates: start: 20180810, end: 20180817
  2. EPCLUSA [Suspect]
     Active Substance: SOFOSBUVIR\VELPATASVIR
     Indication: CHRONIC HEPATITIS C
     Dosage: 1 DOSAGE FORM
     Route: 048
     Dates: start: 20180810
  3. AVEDOL [Concomitant]
     Active Substance: CARVEDILOL

REACTIONS (9)
  - Anaemia [Unknown]
  - Varices oesophageal [Unknown]
  - Hepatic failure [Recovered/Resolved]
  - Inflammatory marker increased [Unknown]
  - Ascites [Unknown]
  - Death [Fatal]
  - Blood bilirubin increased [Recovered/Resolved]
  - Oedema peripheral [Unknown]
  - Peritonitis bacterial [Unknown]

NARRATIVE: CASE EVENT DATE: 20180815
